FAERS Safety Report 14418485 (Version 1)
Quarter: 2018Q1

REPORT INFORMATION
  Report Type: Spontaneous
  Country: US (occurrence: US)
  Receive Date: 20180119
  Receipt Date: 20180119
  Transmission Date: 20180509
  Serious: Yes (Life-Threatening)
  Sender: FDA-Public Use
  Company Number: None

PATIENT
  Age: 58 Year
  Sex: Female
  Weight: 76.5 kg

DRUGS (3)
  1. KRILL OIL [Concomitant]
     Active Substance: DIETARY SUPPLEMENT
  2. ZETIA [Suspect]
     Active Substance: EZETIMIBE
     Indication: BLOOD CHOLESTEROL INCREASED
     Dosage: ?          QUANTITY:1 TABLET(S);?
     Route: 048
     Dates: start: 20171122, end: 20180112
  3. LISINOPRIL. [Concomitant]
     Active Substance: LISINOPRIL

REACTIONS (11)
  - Pain in extremity [None]
  - Chills [None]
  - Pruritus [None]
  - Retching [None]
  - Diarrhoea [None]
  - Renal pain [None]
  - Vomiting [None]
  - Insomnia [None]
  - Faeces pale [None]
  - Pancreatitis [None]
  - Pyrexia [None]

NARRATIVE: CASE EVENT DATE: 20180114
